FAERS Safety Report 4411425-2 (Version None)
Quarter: 2004Q3

REPORT INFORMATION
  Report Type: 
  Country: None (occurrence: None)
  Receive Date: 20040727
  Receipt Date: 20040713
  Transmission Date: 20050211
  Serious: Yes (Other)
  Sender: FDA-Public Use
  Company Number: 2004-UK-00678UK

PATIENT
  Age: 73 Year
  Sex: Male

DRUGS (5)
  1. MICARDIS [Suspect]
     Indication: BLOOD PRESSURE INCREASED
     Dosage: 40 MG PO
     Route: 048
     Dates: start: 20031101, end: 20040501
  2. WARFARIN (WARFARIN) (NR) (WARFARIN) [Concomitant]
  3. DIGOXIN (DIGOXIN) (NR) (DIGOXIN) [Concomitant]
  4. SIMVASTATIN (SIMVASTATIN) (NR) [Concomitant]
  5. SILDENAFIL (SILDENAFIL) (NR) [Concomitant]

REACTIONS (2)
  - DIARRHOEA [None]
  - RECTAL HAEMORRHAGE [None]
